FAERS Safety Report 16617092 (Version 2)
Quarter: 2019Q3

REPORT INFORMATION
  Report Type: Report from Study
  Country: US (occurrence: US)
  Receive Date: 20190723
  Receipt Date: 20190731
  Transmission Date: 20191004
  Serious: No
  Sender: FDA-Public Use
  Company Number: PHEH2019US030141

PATIENT
  Age: 52 Year
  Sex: Female

DRUGS (1)
  1. COSENTYX [Suspect]
     Active Substance: SECUKINUMAB
     Indication: PSORIASIS
     Dosage: 300 MG, QMO
     Route: 058

REACTIONS (5)
  - Ear infection [Unknown]
  - Psoriasis [Unknown]
  - Pain [Unknown]
  - Drug ineffective [Unknown]
  - Arthropod bite [Unknown]

NARRATIVE: CASE EVENT DATE: 20190612
